FAERS Safety Report 9993211 (Version 2)
Quarter: 2014Q2

REPORT INFORMATION
  Report Type: Spontaneous
  Country: DE (occurrence: DE)
  Receive Date: 20140310
  Receipt Date: 20140502
  Transmission Date: 20141212
  Serious: Yes (Other)
  Sender: FDA-Public Use
  Company Number: DE-BAUSCH-BL-2014-001177

PATIENT
  Age: 33 Year
  Sex: Male
  Weight: 60 kg

DRUGS (9)
  1. VIVINOX SLEEP STARK SCHLAFTABLETTEN [Suspect]
     Indication: SUICIDE ATTEMPT
     Route: 048
     Dates: start: 20140223, end: 20140223
  2. PREDNISOLONE [Suspect]
     Indication: SUICIDE ATTEMPT
     Route: 048
     Dates: start: 20140223, end: 20140223
  3. DICLOFENAC [Suspect]
     Indication: SUICIDE ATTEMPT
     Route: 048
     Dates: start: 20140223, end: 20140223
  4. PARACETAMOL [Suspect]
     Indication: SUICIDE ATTEMPT
     Route: 048
     Dates: start: 20140223, end: 20140223
  5. ASPIRIN [Suspect]
     Indication: SUICIDE ATTEMPT
     Route: 048
     Dates: start: 20140223, end: 20140223
  6. VALIDOL [Suspect]
     Indication: SUICIDE ATTEMPT
     Route: 048
     Dates: start: 20140223, end: 20140223
  7. DOLO DOBENDAN [Suspect]
     Indication: SUICIDE ATTEMPT
     Route: 048
     Dates: start: 20140223, end: 20140223
  8. GRIPPOSTAD [Suspect]
     Indication: SUICIDE ATTEMPT
     Route: 048
     Dates: start: 20140223, end: 20140223
  9. OMEPRAZOLE [Suspect]
     Indication: SUICIDE ATTEMPT
     Route: 048
     Dates: start: 20140223, end: 20140223

REACTIONS (4)
  - Suicide attempt [Unknown]
  - Intentional overdose [Recovered/Resolved]
  - Poisoning [Recovered/Resolved]
  - Somnolence [Recovered/Resolved]
